FAERS Safety Report 7464058-8 (Version None)
Quarter: 2011Q2

REPORT INFORMATION
  Report Type: 
  Country: None (occurrence: None)
  Receive Date: 20110506
  Receipt Date: 20110413
  Transmission Date: 20111010
  Serious: Yes (Other)
  Sender: FDA-Public Use
  Company Number: PHHY2011US35980

PATIENT
  Sex: Female

DRUGS (1)
  1. DIOVAN [Suspect]
     Indication: BLOOD PRESSURE
     Dosage: UNK UKN, UNK
     Dates: start: 20110314

REACTIONS (6)
  - RASH [None]
  - PAIN [None]
  - PRURITUS [None]
  - SWELLING [None]
  - VASCULAR INJURY [None]
  - DYSKINESIA [None]
